FAERS Safety Report 22645642 (Version 2)
Quarter: 2023Q2

REPORT INFORMATION
  Report Type: Spontaneous
  Country: US (occurrence: US)
  Receive Date: 20230627
  Receipt Date: 20230629
  Transmission Date: 20230722
  Serious: Yes (Hospitalization)
  Sender: FDA-Public Use
  Company Number: US-PFIZER INC-202300228653

PATIENT
  Age: 78 Year
  Sex: Male
  Weight: 81.65 kg

DRUGS (1)
  1. VYNDAMAX [Suspect]
     Active Substance: TAFAMIDIS
     Indication: Muscular weakness
     Dosage: 61 MG, 1X/DAY

REACTIONS (3)
  - Back disorder [Unknown]
  - Gait inability [Unknown]
  - Off label use [Unknown]
